FAERS Safety Report 6813640-7 (Version None)
Quarter: 2010Q3

REPORT INFORMATION
  Report Type: 
  Country: None (occurrence: None)
  Receive Date: 20100701
  Receipt Date: 20100628
  Transmission Date: 20110219
  Serious: Yes (Life-Threatening)
  Sender: FDA-Public Use
  Company Number: CHPA2010DE10720

PATIENT
  Age: 60 Year
  Sex: Male

DRUGS (2)
  1. OTRIVEN (NCH) [Suspect]
     Dosage: 1 DF, ONCE/SINGLE
     Route: 045
     Dates: start: 20100401, end: 20100401
  2. ANTIHYPERTENSIVES [Suspect]
     Dosage: UNK, UNK

REACTIONS (6)
  - BLOOD PRESSURE SYSTOLIC INCREASED [None]
  - BURNING SENSATION [None]
  - CEREBROVASCULAR ACCIDENT [None]
  - HYPOAESTHESIA [None]
  - MUSCULOSKELETAL STIFFNESS [None]
  - PARALYSIS [None]
